FAERS Safety Report 12509292 (Version 1)
Quarter: 2016Q2

REPORT INFORMATION
  Report Type: Spontaneous
  Country: US (occurrence: US)
  Receive Date: 20160629
  Receipt Date: 20160629
  Transmission Date: 20160815
  Serious: No
  Sender: FDA-Public Use
  Company Number: US-BRISTOL-MYERS SQUIBB COMPANY-BMS-2016-051398

PATIENT
  Sex: Female
  Weight: 117 kg

DRUGS (2)
  1. XANAX [Concomitant]
     Active Substance: ALPRAZOLAM
     Indication: PRODUCT USED FOR UNKNOWN INDICATION
     Dosage: UNK
     Route: 065
  2. ELIQUIS [Suspect]
     Active Substance: APIXABAN
     Indication: CEREBROVASCULAR ACCIDENT PROPHYLAXIS
     Dosage: 5 MG, BID
     Route: 048

REACTIONS (8)
  - Visual impairment [Unknown]
  - Weight decreased [Unknown]
  - Hypersomnia [Unknown]
  - Feeling hot [Unknown]
  - Incorrect drug administration duration [Unknown]
  - Diarrhoea [Unknown]
  - Faeces soft [Unknown]
  - Anxiety [Unknown]
